FAERS Safety Report 9201568 (Version 4)
Quarter: 2013Q3

REPORT INFORMATION
  Report Type: Report from Study
  Country: US (occurrence: US)
  Receive Date: 20130401
  Receipt Date: 20130827
  Transmission Date: 20140515
  Serious: Yes (Other)
  Sender: FDA-Public Use
  Company Number: US-JNJFOC-20130315709

PATIENT
  Sex: Female

DRUGS (18)
  1. STELARA [Suspect]
     Indication: PSORIASIS
     Route: 058
     Dates: end: 2013
  2. STELARA [Suspect]
     Indication: PSORIASIS
     Route: 058
     Dates: start: 20120315
  3. STELARA [Suspect]
     Indication: PSORIASIS
     Route: 058
     Dates: start: 20130110
  4. STELARA [Suspect]
     Indication: PSORIASIS
     Route: 058
     Dates: start: 20120614
  5. STELARA [Suspect]
     Indication: PSORIASIS
     Route: 058
     Dates: start: 201105
  6. OTHER THERAPEUTIC PRODUCT UNSPECIFIED [Concomitant]
  7. XYZAL [Concomitant]
     Dosage: 1 TO 2 TIMES
     Route: 048
  8. HYDROXYZINE HYDROCHLORIDE [Concomitant]
     Dosage: 1 TO 2 TIMES
     Route: 048
  9. METHOTREXATE [Concomitant]
     Indication: PSORIASIS
     Dosage: 1 TO 2 TIMES
     Route: 048
     Dates: start: 2010, end: 2012
  10. ULTRAVATE [Concomitant]
     Dosage: 1 TO 2 TIMES
     Route: 061
  11. TRIAMCINOLONE ACETONIDE [Concomitant]
     Dosage: 1 TO 2 TIMES
     Route: 061
  12. FOLIC ACID [Concomitant]
     Dosage: 1 TO 2 TIMES
     Route: 048
  13. PHENTERMINE [Concomitant]
     Dosage: 1 TO 2 TIMES
     Route: 065
  14. PROZAC [Concomitant]
     Dosage: 1 TO 2 TIMES
     Route: 061
  15. METFORMIN [Concomitant]
     Dosage: 1 TO 2 TIMES
     Route: 065
  16. CLARITIN [Concomitant]
     Dosage: 1 TO 2 TIMES
     Route: 065
  17. ENBREL [Concomitant]
     Indication: PSORIASIS
     Route: 065
     Dates: start: 20080423
  18. TOPICAL CORTICOSTEROIDS [Concomitant]
     Indication: PSORIASIS
     Route: 061

REACTIONS (2)
  - Malignant melanoma in situ [Recovering/Resolving]
  - Dermatitis [Unknown]
